FAERS Safety Report 10430591 (Version 1)
Quarter: 2014Q3

REPORT INFORMATION
  Report Type: Spontaneous
  Country: US (occurrence: US)
  Receive Date: 20140904
  Receipt Date: 20140904
  Transmission Date: 20150326
  Serious: Yes (Death)
  Sender: FDA-Public Use
  Company Number: US-SA-2014SA118671

PATIENT
  Age: 34 Year
  Sex: Female

DRUGS (2)
  1. ZOLPIDEM TARTRATE. [Suspect]
     Active Substance: ZOLPIDEM TARTRATE
     Indication: COMPLETED SUICIDE
     Route: 065
  2. ETHANOL [Interacting]
     Active Substance: ALCOHOL
     Indication: COMPLETED SUICIDE
     Route: 065

REACTIONS (2)
  - Completed suicide [Fatal]
  - Drug interaction [Unknown]
